FAERS Safety Report 5361738-5 (Version None)
Quarter: 2007Q2

REPORT INFORMATION
  Report Type: 
  Country: None (occurrence: None)
  Receive Date: 20070615
  Receipt Date: 20070615
  Transmission Date: 20071010
  Serious: Yes (Hospitalization)
  Sender: FDA-Public Use
  Company Number: None

PATIENT
  Age: 66 Year
  Sex: Male

DRUGS (1)
  1. VALPROATE SODIUM [Suspect]
     Indication: BIPOLAR I DISORDER
     Dosage: 750MG BID PO
     Route: 048
     Dates: start: 20070111, end: 20070420

REACTIONS (3)
  - ANOREXIA [None]
  - PANCREATITIS [None]
  - WEIGHT DECREASED [None]
